FAERS Safety Report 4842928-4 (Version None)
Quarter: 2005Q4

REPORT INFORMATION
  Report Type: 
  Country: None (occurrence: None)
  Receive Date: 20051130
  Receipt Date: 20051117
  Transmission Date: 20060501
  Serious: Yes (Other)
  Sender: FDA-Public Use
  Company Number: 2005158294

PATIENT
  Age: 27 Year
  Sex: Female

DRUGS (4)
  1. MISOPROSTOL [Suspect]
     Indication: ABORTION SPONTANEOUS
     Dosage: 800 MCG, VAGINAL
     Route: 067
     Dates: start: 20051020, end: 20051020
  2. THYROXINE (LEVOTHYROXINE) [Concomitant]
  3. FOLIC ACID [Concomitant]
  4. MIFEPRISTONE (MIFEPRISTONE) [Concomitant]

REACTIONS (4)
  - DIZZINESS [None]
  - HYPERVENTILATION [None]
  - HYPOTENSION [None]
  - PULSE ABNORMAL [None]
